FAERS Safety Report 15534643 (Version 2)
Quarter: 2018Q4

REPORT INFORMATION
  Report Type: Spontaneous
  Country: US (occurrence: US)
  Receive Date: 20181022
  Receipt Date: 20181101
  Transmission Date: 20190205
  Serious: No
  Sender: FDA-Public Use
  Company Number: US-B.I. PHARMACEUTICALS,INC./RIDGEFIELD-2018-BI-050645

PATIENT
  Sex: Female

DRUGS (1)
  1. COMBIVENT [Suspect]
     Active Substance: ALBUTEROL SULFATE\IPRATROPIUM BROMIDE
     Indication: EMPHYSEMA
     Dosage: ONE PUFF FOUR TIMES A DAY;  FORM STRENGTH: 20 MCG / 100 MCG;  ?YES ?ACTION TAKEN NOT APPLICABLE
     Route: 055
     Dates: start: 201801

REACTIONS (2)
  - Product quality issue [Unknown]
  - Dyspnoea [Not Recovered/Not Resolved]
